FAERS Safety Report 6597177-9 (Version None)
Quarter: 2010Q1

REPORT INFORMATION
  Report Type: 
  Country: None (occurrence: None)
  Receive Date: 20100223
  Receipt Date: 20100222
  Transmission Date: 20100710
  Serious: Yes (Hospitalization, Other)
  Sender: FDA-Public Use
  Company Number: US-ROXANE LABORATORIES, INC.-2010-RO-00191RO

PATIENT
  Age: 74 Year
  Sex: Female

DRUGS (2)
  1. FLECAINIDE [Suspect]
     Indication: ATRIAL FIBRILLATION
     Dates: start: 20070701, end: 20070901
  2. MULTAQ [Suspect]
     Indication: ATRIAL FIBRILLATION

REACTIONS (11)
  - ATRIAL FIBRILLATION [None]
  - CHILLS [None]
  - DYSKINESIA [None]
  - FEELING ABNORMAL [None]
  - FEELING JITTERY [None]
  - MALAISE [None]
  - NAUSEA [None]
  - NERVOUSNESS [None]
  - ORAL DISCOMFORT [None]
  - TREMOR [None]
  - WEIGHT INCREASED [None]
